FAERS Safety Report 5311326-1 (Version None)
Quarter: 2007Q2

REPORT INFORMATION
  Report Type: 
  Country: None (occurrence: None)
  Receive Date: 20070430
  Receipt Date: 20070426
  Transmission Date: 20071010
  Serious: Yes (Death)
  Sender: FDA-Public Use
  Company Number: US-GENENTECH-231897

PATIENT

DRUGS (3)
  1. AVASTIN [Suspect]
     Indication: NON-SMALL CELL LUNG CANCER
  2. CARBOPLATIN [Concomitant]
     Indication: NON-SMALL CELL LUNG CANCER
  3. TAXOL [Concomitant]
     Indication: NON-SMALL CELL LUNG CANCER

REACTIONS (1)
  - NEUTROPENIC SEPSIS [None]
